FAERS Safety Report 20087960 (Version 2)
Quarter: 2021Q4

REPORT INFORMATION
  Report Type: Spontaneous
  Country: US (occurrence: US)
  Receive Date: 20211118
  Receipt Date: 20211125
  Transmission Date: 20220303
  Serious: Yes (Life-Threatening, Hospitalization, Other)
  Sender: FDA-Public Use
  Company Number: US-PURDUE-USA-2021-0289204

PATIENT
  Sex: Female
  Weight: 52.16 kg

DRUGS (3)
  1. OXYCONTIN [Suspect]
     Active Substance: OXYCODONE HYDROCHLORIDE
     Indication: Pain
     Route: 048
  2. OXYCODONE HYDROCHLORIDE [Suspect]
     Active Substance: OXYCODONE HYDROCHLORIDE
     Indication: Pain
     Route: 048
  3. LYRICA [Suspect]
     Active Substance: PREGABALIN
     Indication: Fibromyalgia
     Dosage: 75 MG, BID
     Route: 065
     Dates: start: 2006

REACTIONS (7)
  - Breast cancer [Unknown]
  - Cerebrovascular accident [Unknown]
  - Immunodeficiency [Unknown]
  - Suicide attempt [Unknown]
  - Abnormal loss of weight [Unknown]
  - Speech disorder [Unknown]
  - Drug tolerance [Unknown]

NARRATIVE: CASE EVENT DATE: 20120101
